FAERS Safety Report 5740306-7 (Version None)
Quarter: 2008Q2

REPORT INFORMATION
  Report Type: 
  Country: None (occurrence: None)
  Receive Date: 20080516
  Receipt Date: 20080508
  Transmission Date: 20081010
  Serious: Yes (Other)
  Sender: FDA-Public Use
  Company Number: US-BAYER-200822309NA

PATIENT
  Age: 84 Year
  Sex: Female

DRUGS (6)
  1. AVELOX [Suspect]
     Indication: LOWER RESPIRATORY TRACT INFECTION
     Dosage: TOTAL DAILY DOSE: 400 MG  UNIT DOSE: 400 MG
     Route: 048
     Dates: start: 20080501
  2. AVELOX [Suspect]
     Route: 048
     Dates: start: 20080401
  3. SOTALOL HCL [Suspect]
     Indication: DRUG USE FOR UNKNOWN INDICATION
  4. LASIX [Concomitant]
     Dosage: TOTAL DAILY DOSE: 40 MG
     Route: 048
  5. COUMADIN [Concomitant]
     Dosage: TOTAL DAILY DOSE: 3 MG
     Route: 048
  6. DIGOXIN [Concomitant]
     Dosage: TOTAL DAILY DOSE: 125 ?G
     Route: 048

REACTIONS (3)
  - FOAMING AT MOUTH [None]
  - LOSS OF CONSCIOUSNESS [None]
  - OEDEMA PERIPHERAL [None]
